FAERS Safety Report 6420999-1 (Version None)
Quarter: 2009Q4

REPORT INFORMATION
  Report Type: 
  Country: None (occurrence: None)
  Receive Date: 20091030
  Receipt Date: 20091022
  Transmission Date: 20100525
  Serious: Yes (Other)
  Sender: FDA-Public Use
  Company Number: US-JNJFOC-20091008061

PATIENT
  Sex: Female
  Weight: 122.47 kg

DRUGS (8)
  1. DURAGESIC-100 [Suspect]
     Route: 062
  2. DURAGESIC-100 [Suspect]
     Indication: PAIN
     Route: 062
  3. FENTANYL TRANSDERMAL SYSTEM [Suspect]
     Indication: PAIN
     Route: 062
  4. DURAGESIC-100 [Suspect]
     Route: 062
     Dates: start: 20091020
  5. NEURONTIN [Concomitant]
     Indication: FIBROMYALGIA
  6. EFFEXOR [Concomitant]
     Indication: PAIN
  7. UNKNOWN MEDICATION [Concomitant]
     Indication: ASTHMA
  8. UNKNOWN MEDICATION [Concomitant]
     Indication: MULTIPLE ALLERGIES

REACTIONS (10)
  - CHEST DISCOMFORT [None]
  - DIZZINESS [None]
  - DYSPNOEA [None]
  - HYPERHIDROSIS [None]
  - HYPERTENSION [None]
  - PRODUCT QUALITY ISSUE [None]
  - ROAD TRAFFIC ACCIDENT [None]
  - SENSATION OF FOREIGN BODY [None]
  - TREMOR [None]
  - WITHDRAWAL SYNDROME [None]
